FAERS Safety Report 23113173 (Version 1)
Quarter: 2023Q4

REPORT INFORMATION
  Report Type: Spontaneous
  Country: AU (occurrence: AU)
  Receive Date: 20231027
  Receipt Date: 20231027
  Transmission Date: 20240109
  Serious: Yes (Hospitalization, Other)
  Sender: FDA-Public Use
  Company Number: AU-BRISTOL-MYERS SQUIBB COMPANY-2023-149099

PATIENT
  Age: 54 Year
  Sex: Male

DRUGS (2)
  1. APIXABAN [Suspect]
     Active Substance: APIXABAN
     Indication: Aortic thrombosis
     Dates: start: 20220804
  2. APIXABAN [Suspect]
     Active Substance: APIXABAN
     Indication: Leriche syndrome
     Dates: start: 20220805

REACTIONS (6)
  - Cerebral microhaemorrhage [Unknown]
  - Dyspnoea [Unknown]
  - Hypertensive crisis [Unknown]
  - Cerebral infarction [Unknown]
  - Off label use [Unknown]
  - Cerebral arteriosclerosis [Unknown]

NARRATIVE: CASE EVENT DATE: 20221021
